FAERS Safety Report 6081866-9 (Version None)
Quarter: 2009Q1

REPORT INFORMATION
  Report Type: 
  Country: None (occurrence: None)
  Receive Date: 20090218
  Receipt Date: 20080414
  Transmission Date: 20090719
  Serious: No
  Sender: FDA-Public Use
  Company Number: US-BRISTOL-MYERS SQUIBB COMPANY-14150411

PATIENT
  Age: 58 Year
  Sex: Male

DRUGS (5)
  1. METFORMIN HCL [Suspect]
  2. GLYBURIDE [Suspect]
  3. PRANDIN [Suspect]
  4. ZOCOR [Suspect]
  5. CYMBALTA [Suspect]

REACTIONS (1)
  - HYPERSENSITIVITY [None]
